FAERS Safety Report 13301386 (Version 1)
Quarter: 2017Q1

REPORT INFORMATION
  Report Type: Spontaneous
  Country: US (occurrence: US)
  Receive Date: 20170307
  Receipt Date: 20170307
  Transmission Date: 20170428
  Serious: Yes (Other)
  Sender: FDA-Public Use
  Company Number: US-ASTELLAS-2017US008523

PATIENT
  Sex: Female

DRUGS (1)
  1. CRESEMBA [Suspect]
     Active Substance: ISAVUCONAZONIUM SULFATE
     Indication: ASPERGILLUS INFECTION
     Dosage: 372 MG (186 MG TWO CAPSULES), ONCE DAILY
     Route: 048
     Dates: start: 201609, end: 201702

REACTIONS (3)
  - Bladder neoplasm [Unknown]
  - Urinary tract infection [Not Recovered/Not Resolved]
  - Neoplasm malignant [Unknown]
